FAERS Safety Report 4335277-4 (Version None)
Quarter: 2004Q2

REPORT INFORMATION
  Report Type: 
  Country: None (occurrence: None)
  Receive Date: 20040406
  Receipt Date: 20040116
  Transmission Date: 20050107
  Serious: Yes (Other)
  Sender: FDA-Public Use
  Company Number: 343957

PATIENT
  Age: 63 Year
  Sex: Male
  Weight: 57.6 kg

DRUGS (5)
  1. FUZEON [Suspect]
     Indication: HIV INFECTION
     Dosage: 90 MG  2 PER DAY  SUBCUTANEOUS
     Route: 058
     Dates: start: 20030623
  2. KALETRA [Concomitant]
  3. 3TC  (LAMIVUDINE) [Concomitant]
  4. TENOFOVIR [Concomitant]
  5. VIDEX EC [Concomitant]

REACTIONS (7)
  - DIARRHOEA [None]
  - HYPOTONIA [None]
  - LOCALISED INFECTION [None]
  - NOCTURIA [None]
  - OEDEMA PERIPHERAL [None]
  - TINNITUS [None]
  - WEIGHT DECREASED [None]
